FAERS Safety Report 11706781 (Version 1)
Quarter: 2015Q4

REPORT INFORMATION
  Report Type: Spontaneous
  Country: US (occurrence: US)
  Receive Date: 20151104
  Receipt Date: 20151104
  Transmission Date: 20160304
  Serious: No
  Sender: FDA-Public Use
  Company Number: US-ELI_LILLY_AND_COMPANY-US201102000484

PATIENT
  Age: 62 Year
  Sex: Female

DRUGS (1)
  1. FORTEO [Suspect]
     Active Substance: TERIPARATIDE
     Indication: OSTEOPOROSIS
     Dosage: 20 UG, DAILY (1/D)
     Route: 065
     Dates: start: 20110127

REACTIONS (11)
  - Sleep disorder due to a general medical condition [Unknown]
  - Pain in extremity [Recovering/Resolving]
  - Arthralgia [Unknown]
  - Back pain [Not Recovered/Not Resolved]
  - Nausea [Unknown]
  - Impaired gastric emptying [Unknown]
  - Parosmia [Recovered/Resolved]
  - Product taste abnormal [Recovered/Resolved]
  - Bone pain [Unknown]
  - Bone loss [Unknown]
  - Rheumatoid arthritis [Unknown]

NARRATIVE: CASE EVENT DATE: 20110129
